FAERS Safety Report 16308478 (Version 1)
Quarter: 2019Q2

REPORT INFORMATION
  Report Type: Spontaneous
  Country: US (occurrence: US)
  Receive Date: 20190514
  Receipt Date: 20190514
  Transmission Date: 20190711
  Serious: No
  Sender: FDA-Public Use
  Company Number: US-AMGEN-USASP2019074202

PATIENT
  Sex: Female

DRUGS (2)
  1. ENBREL [Suspect]
     Active Substance: ETANERCEPT
     Indication: BLOOD CHOLESTEROL INCREASED
     Dosage: 50 MILLIGRAM
     Route: 065
     Dates: start: 2019, end: 2019
  2. ENBREL [Suspect]
     Active Substance: ETANERCEPT
     Dosage: 50 MILLIGRAM
     Route: 065
     Dates: start: 2019

REACTIONS (4)
  - Joint effusion [Unknown]
  - Off label use [Unknown]
  - Condition aggravated [Not Recovered/Not Resolved]
  - Device dispensing error [Unknown]

NARRATIVE: CASE EVENT DATE: 2019
